FAERS Safety Report 8591334-8 (Version None)
Quarter: 2012Q3

REPORT INFORMATION
  Report Type: 
  Country: None (occurrence: None)
  Receive Date: 20120814
  Receipt Date: 20120807
  Transmission Date: 20120928
  Serious: Yes (Other)
  Sender: FDA-Public Use
  Company Number: JP-BRISTOL-MYERS SQUIBB COMPANY-16850299

PATIENT
  Age: 70 Year
  Sex: Male

DRUGS (3)
  1. LIVALO [Concomitant]
     Route: 048
     Dates: start: 20120101, end: 20120701
  2. AVAPRO [Suspect]
     Indication: HYPERTENSION
     Route: 048
     Dates: start: 20120101, end: 20120701
  3. TAMSULOSIN HCL [Concomitant]
     Dosage: HARNAL D
     Route: 048
     Dates: start: 20120101, end: 20120701

REACTIONS (3)
  - WEIGHT INCREASED [None]
  - GASTROENTERITIS [None]
  - OEDEMA PERIPHERAL [None]
